FAERS Safety Report 6355042-6 (Version None)
Quarter: 2009Q3

REPORT INFORMATION
  Report Type: 
  Country: None (occurrence: None)
  Receive Date: 20090914
  Receipt Date: 20090907
  Transmission Date: 20100115
  Serious: Yes (Hospitalization)
  Sender: FDA-Public Use
  Company Number: B0593088A

PATIENT
  Sex: Female

DRUGS (1)
  1. AUGMENTIN '125' [Suspect]
     Indication: DRUG USE FOR UNKNOWN INDICATION
     Dosage: 1G PER DAY
     Route: 048
     Dates: start: 20090801, end: 20090801

REACTIONS (5)
  - ABDOMINAL PAIN [None]
  - AGITATION [None]
  - HYPERAEMIA [None]
  - OEDEMA PERIPHERAL [None]
  - PARAESTHESIA [None]
